FAERS Safety Report 15470166 (Version 2)
Quarter: 2018Q4

REPORT INFORMATION
  Report Type: Spontaneous
  Country: US (occurrence: US)
  Receive Date: 20181005
  Receipt Date: 20181029
  Transmission Date: 20190205
  Serious: No
  Sender: FDA-Public Use
  Company Number: US-HORIZON-PEN-1055-2018

PATIENT
  Sex: Male

DRUGS (1)
  1. PENNSAID [Suspect]
     Active Substance: DICLOFENAC SODIUM
     Indication: JOINT INJURY
     Dosage: 2 PUMPS BID
     Dates: start: 201809

REACTIONS (2)
  - Application site perspiration [Not Recovered/Not Resolved]
  - Off label use [Unknown]
